FAERS Safety Report 6195288-3 (Version None)
Quarter: 2009Q2

REPORT INFORMATION
  Report Type: 
  Country: None (occurrence: None)
  Receive Date: 20090515
  Receipt Date: 20090508
  Transmission Date: 20091009
  Serious: No
  Sender: FDA-Public Use
  Company Number: 20096619

PATIENT
  Sex: Male

DRUGS (1)
  1. LIORESAL [Suspect]
     Indication: MUSCLE SPASTICITY
     Dosage: 600 MCG, DAILY, INTRATHECAL
     Route: 037

REACTIONS (3)
  - APPLICATION SITE EROSION [None]
  - INFECTION [None]
  - MEDICAL DEVICE COMPLICATION [None]
